FAERS Safety Report 10188998 (Version 2)
Quarter: 2014Q2

REPORT INFORMATION
  Report Type: Spontaneous
  Country: CH (occurrence: CH)
  Receive Date: 20140522
  Receipt Date: 20140624
  Transmission Date: 20141212
  Serious: Yes (Other)
  Sender: FDA-Public Use
  Company Number: PHHY2014CH061342

PATIENT
  Age: 15 Year
  Sex: Male

DRUGS (3)
  1. ILARIS [Suspect]
     Indication: FAMILIAL MEDITERRANEAN FEVER
     Dosage: 150 MG, UNK
     Dates: start: 20140509
  2. ILARIS [Suspect]
     Indication: OFF LABEL USE
     Dosage: 150 MG, UNK
     Dates: start: 20140516
  3. COLCHICINE [Concomitant]

REACTIONS (14)
  - Disorientation [Recovered/Resolved]
  - Limb discomfort [Recovered/Resolved]
  - Nausea [Recovered/Resolved]
  - Pyrexia [Recovered/Resolved]
  - Abdominal pain upper [Recovered/Resolved]
  - Headache [Recovered/Resolved]
  - Tremor [Recovered/Resolved]
  - Body temperature fluctuation [Recovered/Resolved]
  - Feeling abnormal [Recovered/Resolved]
  - Somnolence [Recovered/Resolved]
  - Sensitisation [Recovered/Resolved]
  - Adjustment disorder [Recovered/Resolved]
  - Hypersensitivity [Recovered/Resolved]
  - Tachycardia [Recovered/Resolved]
